FAERS Safety Report 8863441 (Version 1)
Quarter: 2012Q4

REPORT INFORMATION
  Report Type: 
  Country: US (occurrence: US)
  Receive Date: 20121024
  Receipt Date: 20121024
  Transmission Date: 20130627
  Serious: Yes (Hospitalization, Other)
  Sender: FDA-Public Use
  Company Number: US-AMGEN-USASP2011062487

PATIENT
  Age: 57 Year
  Sex: Female

DRUGS (1)
  1. ENBREL [Suspect]
     Indication: PSORIATIC ARTHROPATHY
     Dosage: 50 mg, qwk
     Dates: start: 19981101

REACTIONS (6)
  - Ear pain [Recovered/Resolved]
  - Secretion discharge [Not Recovered/Not Resolved]
  - Cough [Not Recovered/Not Resolved]
  - Pneumonia bacterial [Unknown]
  - Nasopharyngitis [Recovered/Resolved]
  - Respiratory tract congestion [Not Recovered/Not Resolved]
